FAERS Safety Report 10574113 (Version 1)
Quarter: 2014Q4

REPORT INFORMATION
  Report Type: Spontaneous
  Country: ES (occurrence: ES)
  Receive Date: 20141110
  Receipt Date: 20141110
  Transmission Date: 20150529
  Serious: Yes (Other)
  Sender: FDA-Public Use
  Company Number: PHHY2014ES143371

PATIENT
  Age: 60 Year
  Sex: Female

DRUGS (14)
  1. ENBREL [Suspect]
     Active Substance: ETANERCEPT
     Dosage: UNK
     Route: 065
  2. ENBREL [Suspect]
     Active Substance: ETANERCEPT
     Dosage: UNK
     Route: 065
  3. METFORMIN [Concomitant]
     Active Substance: METFORMIN HYDROCHLORIDE
     Indication: PRODUCT USED FOR UNKNOWN INDICATION
     Route: 065
  4. BERTANEL [Suspect]
     Active Substance: METHOTREXATE SODIUM
     Indication: RHEUMATOID ARTHRITIS
     Dosage: WEEKLY
     Route: 065
  5. ENBREL [Suspect]
     Active Substance: ETANERCEPT
     Indication: RHEUMATOID ARTHRITIS
     Dosage: 50 MG, WEEKLY, ON WEDNESDAYS
     Route: 058
     Dates: start: 20140212
  6. LEXATIN [Concomitant]
     Active Substance: BROMAZEPAM
     Indication: PRODUCT USED FOR UNKNOWN INDICATION
     Route: 065
  7. CARDURA [Concomitant]
     Active Substance: DOXAZOSIN MESYLATE
     Indication: PRODUCT USED FOR UNKNOWN INDICATION
     Route: 065
  8. BESITRAN [Concomitant]
     Active Substance: SERTRALINE HYDROCHLORIDE
     Indication: PRODUCT USED FOR UNKNOWN INDICATION
     Route: 065
  9. ENBREL [Suspect]
     Active Substance: ETANERCEPT
     Dosage: UNK
     Route: 065
  10. URBASON [Suspect]
     Active Substance: METHYLPREDNISOLONE
     Indication: INFLAMMATION
  11. IRON [Concomitant]
     Active Substance: IRON
     Indication: PRODUCT USED FOR UNKNOWN INDICATION
     Route: 065
  12. SERACTIL [Concomitant]
     Active Substance: DEXIBUPROFEN
     Indication: PRODUCT USED FOR UNKNOWN INDICATION
     Route: 065
  13. ALDACTONE 100 [Concomitant]
     Indication: PRODUCT USED FOR UNKNOWN INDICATION
     Route: 065
  14. OMEPRAZOL [Concomitant]
     Active Substance: OMEPRAZOLE
     Indication: PRODUCT USED FOR UNKNOWN INDICATION
     Route: 065

REACTIONS (19)
  - Listless [Unknown]
  - Hot flush [Unknown]
  - Somnolence [Unknown]
  - Diarrhoea [Unknown]
  - Pain in extremity [Unknown]
  - Thirst [Unknown]
  - Food craving [Unknown]
  - Increased appetite [Unknown]
  - Pain [Unknown]
  - Injection site pain [Unknown]
  - Inflammation [Unknown]
  - Local swelling [Unknown]
  - Rheumatoid arthritis [Unknown]
  - Vision blurred [Unknown]
  - Fatigue [Unknown]
  - Dizziness [Unknown]
  - Pain in extremity [Unknown]
  - Blindness [Unknown]
  - Abdominal pain [Unknown]

NARRATIVE: CASE EVENT DATE: 2014
